FAERS Safety Report 7550041-0 (Version None)
Quarter: 2011Q2

REPORT INFORMATION
  Report Type: 
  Country: None (occurrence: None)
  Receive Date: 20110615
  Receipt Date: 20110613
  Transmission Date: 20111010
  Serious: Yes (Other)
  Sender: FDA-Public Use
  Company Number: US-PFIZER INC-2011072307

PATIENT
  Sex: Female
  Weight: 74.8 kg

DRUGS (1)
  1. DAYPRO [Suspect]
     Indication: EPICONDYLITIS
     Dosage: 600 MG, 2X/DAY
     Route: 048
     Dates: start: 20110201, end: 20110313

REACTIONS (4)
  - PHARYNGEAL OEDEMA [None]
  - DYSPHAGIA [None]
  - HYPERSENSITIVITY [None]
  - SWELLING FACE [None]
